FAERS Safety Report 16831293 (Version 1)
Quarter: 2019Q3

REPORT INFORMATION
  Report Type: Spontaneous
  Country: SE (occurrence: SE)
  Receive Date: 20190920
  Receipt Date: 20190920
  Transmission Date: 20191005
  Serious: Yes (Other)
  Sender: FDA-Public Use
  Company Number: SE-TEVA-2019-SE-1110610

PATIENT
  Sex: Male

DRUGS (1)
  1. MYFENAX [Suspect]
     Active Substance: MYCOPHENOLATE MOFETIL
     Route: 065

REACTIONS (3)
  - Feeling abnormal [Unknown]
  - Autism spectrum disorder [Not Recovered/Not Resolved]
  - Paternal exposure timing unspecified [Unknown]
